FAERS Safety Report 7965645-0 (Version None)
Quarter: 2011Q4

REPORT INFORMATION
  Report Type: 
  Country: None (occurrence: None)
  Receive Date: 20111208
  Receipt Date: 20111128
  Transmission Date: 20120403
  Serious: Yes (Hospitalization, Other)
  Sender: FDA-Public Use
  Company Number: PHHY2011FR105844

PATIENT
  Sex: Female

DRUGS (5)
  1. LEVONORGESTREL [Suspect]
     Indication: CONTRACEPTION
     Dates: start: 20101201
  2. NEO-CODION [Suspect]
     Indication: COUGH
     Dates: start: 20101229
  3. LUTENYL [Suspect]
     Indication: OVARIAN CYST
     Route: 048
     Dates: start: 20101201
  4. ASPEGIC 325 [Suspect]
     Indication: INFLUENZA LIKE ILLNESS
     Dates: start: 20101226
  5. OMEPRAZOLE [Suspect]
     Indication: OVARIAN CYST
     Dates: start: 20101201

REACTIONS (41)
  - RESPIRATORY DISTRESS [None]
  - CREPITATIONS [None]
  - SYMBLEPHARON [None]
  - LUNG INFILTRATION [None]
  - KERATITIS [None]
  - WEIGHT DECREASED [None]
  - HEADACHE [None]
  - ENTEROBACTER INFECTION [None]
  - ANTIBIOTIC RESISTANT STAPHYLOCOCCUS TEST POSITIVE [None]
  - MYCOPLASMA INFECTION [None]
  - CONJUNCTIVITIS [None]
  - CHILLS [None]
  - CORNEAL EROSION [None]
  - PHOTOPHOBIA [None]
  - PSEUDOMONAS INFECTION [None]
  - RASH [None]
  - RHONCHI [None]
  - SKIN HYPOPIGMENTATION [None]
  - SCAR [None]
  - AGITATION [None]
  - BACILLUS INFECTION [None]
  - ODYNOPHAGIA [None]
  - EAR, NOSE AND THROAT EXAMINATION ABNORMAL [None]
  - INFLUENZA [None]
  - URTICARIA [None]
  - PYREXIA [None]
  - VULVAR EROSION [None]
  - BLOOD PRESSURE DECREASED [None]
  - ANORECTAL DISCOMFORT [None]
  - ORAL DISCOMFORT [None]
  - LYMPHADENOPATHY [None]
  - OCULAR HYPERAEMIA [None]
  - COUGH [None]
  - MYALGIA [None]
  - ABDOMINAL PAIN UPPER [None]
  - GENITAL LABIAL ADHESIONS [None]
  - DERMATITIS BULLOUS [None]
  - NIKOLSKY'S SIGN [None]
  - TOXIC EPIDERMAL NECROLYSIS [None]
  - VENOUS THROMBOSIS [None]
  - OCULAR DISCOMFORT [None]
